FAERS Safety Report 23765942 (Version 1)
Quarter: 2024Q2

REPORT INFORMATION
  Report Type: Spontaneous
  Country: CN (occurrence: None)
  Receive Date: 20240421
  Receipt Date: 20240421
  Transmission Date: 20240716
  Serious: Yes (Hospitalization, Other)
  Sender: FDA-Public Use
  Company Number: 2024A094401

PATIENT
  Age: 12522 Day
  Sex: Female
  Weight: 74 kg

DRUGS (4)
  1. DAPAGLIFLOZIN [Suspect]
     Active Substance: DAPAGLIFLOZIN
     Indication: Blood glucose increased
     Route: 048
     Dates: start: 20240130, end: 20240404
  2. RIVAROXABAN [Suspect]
     Active Substance: RIVAROXABAN
     Indication: Hypoproteinaemia
     Route: 048
     Dates: start: 20240130, end: 20240404
  3. LOSARTAN POTASSIUM AND HYDROCHLOROTHIAZIDE [Suspect]
     Active Substance: HYDROCHLOROTHIAZIDE\LOSARTAN POTASSIUM
     Indication: Protein urine
     Route: 048
     Dates: start: 20240129, end: 20240404
  4. FENOFIBRATE [Suspect]
     Active Substance: FENOFIBRATE
     Indication: Hyperlipidaemia
     Route: 048
     Dates: start: 20240130, end: 20240404

REACTIONS (3)
  - Blood creatinine increased [Recovering/Resolving]
  - Tubulointerstitial nephritis [Unknown]
  - Glomerulonephritis membranous [Unknown]

NARRATIVE: CASE EVENT DATE: 20240403
